FAERS Safety Report 19352187 (Version 1)
Quarter: 2021Q2

REPORT INFORMATION
  Report Type: Report from Study
  Country: MX (occurrence: MX)
  Receive Date: 20210601
  Receipt Date: 20210601
  Transmission Date: 20210717
  Serious: Yes (Other)
  Sender: FDA-Public Use
  Company Number: NVSC2021MX121790

PATIENT
  Sex: Male
  Weight: 70 kg

DRUGS (1)
  1. EXFORGE HCT [Suspect]
     Active Substance: AMLODIPINE BESYLATE\HYDROCHLOROTHIAZIDE\VALSARTAN
     Indication: HYPERTENSION
     Dosage: 1 DF, QD
     Route: 048
     Dates: start: 2019

REACTIONS (7)
  - Renal disorder [Unknown]
  - Diabetes mellitus [Not Recovered/Not Resolved]
  - Blood pressure fluctuation [Unknown]
  - Cardiac disorder [Unknown]
  - Blood glucose increased [Unknown]
  - Prostatic disorder [Unknown]
  - Blindness [Unknown]
